FAERS Safety Report 13335727 (Version 2)
Quarter: 2017Q2

REPORT INFORMATION
  Report Type: Spontaneous
  Country: US (occurrence: US)
  Receive Date: 20170314
  Receipt Date: 20170424
  Transmission Date: 20170830
  Serious: No
  Sender: FDA-Public Use
  Company Number: US-INCYTE CORPORATION-2017IN001662

PATIENT
  Sex: Male
  Weight: 109.75 kg

DRUGS (1)
  1. JAKAFI [Suspect]
     Active Substance: RUXOLITINIB
     Indication: POLYCYTHAEMIA VERA
     Dosage: 20 MG, BID (TWICE DAILY)
     Route: 048
     Dates: start: 20160818

REACTIONS (1)
  - Erectile dysfunction [Unknown]
